FAERS Safety Report 25159616 (Version 2)
Quarter: 2025Q2

REPORT INFORMATION
  Report Type: Spontaneous
  Country: CN (occurrence: CN)
  Receive Date: 20250404
  Receipt Date: 20250608
  Transmission Date: 20250716
  Serious: Yes (Hospitalization)
  Sender: COHERUS
  Company Number: CN-SHANGHAI JUNSHI BIOSCIENCES CO., LTD.-CN2025013558

PATIENT

DRUGS (6)
  1. TORIPALIMAB [Suspect]
     Active Substance: TORIPALIMAB
     Indication: Oropharyngeal cancer
     Dosage: 240 MG (D0), Q21D, ADMINISTER FOR 4 CYCLES
     Route: 041
     Dates: start: 20241213, end: 20250215
  2. GIMERACIL\OTERACIL\TEGAFUR [Suspect]
     Active Substance: GIMERACIL\OTERACIL POTASSIUM\TEGAFUR
     Indication: Oropharyngeal cancer
     Route: 048
     Dates: start: 20241213, end: 20241213
  3. GIMERACIL\OTERACIL\TEGAFUR [Suspect]
     Active Substance: GIMERACIL\OTERACIL POTASSIUM\TEGAFUR
     Route: 048
     Dates: start: 20250214, end: 20250320
  4. CISPLATIN [Suspect]
     Active Substance: CISPLATIN
     Indication: Oropharyngeal cancer
     Dosage: 40 MG (D1-D2, QD), 21 DAYS AS A CYCLE
     Route: 041
     Dates: start: 20250215, end: 20250217
  5. CISPLATIN [Suspect]
     Active Substance: CISPLATIN
     Dosage: 30 MG (D3), 21 DAYS AS A CYCLE
     Route: 041
  6. SODIUM CHLORIDE [Concomitant]
     Active Substance: SODIUM CHLORIDE
     Indication: Medication dilution
     Dosage: 100 ML, QD
     Dates: start: 20250215, end: 20250217

REACTIONS (1)
  - Myelosuppression [Recovering/Resolving]

NARRATIVE: CASE EVENT DATE: 20250307
